FAERS Safety Report 8373317-6 (Version None)
Quarter: 2012Q2

REPORT INFORMATION
  Report Type: 
  Country: None (occurrence: None)
  Receive Date: 20120521
  Receipt Date: 20110503
  Transmission Date: 20120825
  Serious: No
  Sender: FDA-Public Use
  Company Number: US-TEVA-2011002231

PATIENT
  Sex: Female
  Weight: 50.394 kg

DRUGS (6)
  1. RITUXIMAB [Concomitant]
     Dates: start: 20110301
  2. TREANDA [Suspect]
     Indication: B-CELL LYMPHOMA
     Route: 042
     Dates: start: 20110301, end: 20110321
  3. CLONAZEPAM [Concomitant]
  4. METHOTREXATE [Concomitant]
  5. NORVASC [Concomitant]
  6. NEXIUM [Concomitant]

REACTIONS (1)
  - RASH [None]
